FAERS Safety Report 9354061 (Version 2)
Quarter: 2013Q2

REPORT INFORMATION
  Report Type: Report from Study
  Country: CA (occurrence: CA)
  Receive Date: 20130618
  Receipt Date: 20130625
  Transmission Date: 20140414
  Serious: Yes (Hospitalization)
  Sender: FDA-Public Use
  Company Number: CA-JNJFOC-20130610227

PATIENT
  Age: 80 Year
  Sex: Male

DRUGS (1)
  1. STELARA [Suspect]
     Indication: PSORIASIS
     Route: 058
     Dates: start: 20130214, end: 20130617

REACTIONS (4)
  - Asthenia [Unknown]
  - Gait disturbance [Unknown]
  - Cardiac disorder [Unknown]
  - Lower respiratory tract infection [Unknown]
